FAERS Safety Report 9287080 (Version 1)
Quarter: 2013Q2

REPORT INFORMATION
  Report Type: Spontaneous
  Country: US (occurrence: None)
  Receive Date: 20130508
  Receipt Date: 20130508
  Transmission Date: 20140414
  Serious: Yes (Other)
  Sender: FDA-Public Use
  Company Number: SYM-2013-03285

PATIENT
  Age: 35 Year
  Sex: Female
  Weight: 88.45 kg

DRUGS (2)
  1. ACNE FREE KIT [Suspect]
     Indication: ACNE
     Route: 061
     Dates: start: 20130421, end: 20130422
  2. PHENTERMINE (PHENTERMINE) (PHENTERMINE) [Concomitant]

REACTIONS (4)
  - Erythema [None]
  - Rash [None]
  - Eye swelling [None]
  - Application site burn [None]
